FAERS Safety Report 5212702-8 (Version None)
Quarter: 2007Q1

REPORT INFORMATION
  Report Type: 
  Country: None (occurrence: None)
  Receive Date: 20061115
  Receipt Date: 20060828
  Transmission Date: 20070707
  Serious: Yes (Hospitalization)
  Sender: FDA-Public Use
  Company Number: 200613526BWH

PATIENT
  Age: 48 Year
  Sex: Female

DRUGS (6)
  1. NEXAVAR [Suspect]
     Indication: RENAL CELL CARCINOMA STAGE UNSPECIFIED
     Dosage: 400 MG, BID, ORAL
     Route: 048
     Dates: start: 20060426, end: 20060517
  2. DURAGESIC-100 [Concomitant]
  3. FLEXERIL [Concomitant]
  4. AMBIEN [Concomitant]
  5. PHENERGAN [Concomitant]
  6. NEOSPORIN EYE AND EAR [Concomitant]

REACTIONS (8)
  - ABDOMINAL PAIN [None]
  - BLOOD AMYLASE INCREASED [None]
  - GASTROINTESTINAL MOTILITY DISORDER [None]
  - NAUSEA [None]
  - PANCREATITIS [None]
  - RASH [None]
  - SUBILEUS [None]
  - VOMITING [None]
